FAERS Safety Report 17136872 (Version 2)
Quarter: 2020Q1

REPORT INFORMATION
  Report Type: Spontaneous
  Country: US (occurrence: US)
  Receive Date: 20191210
  Receipt Date: 20200103
  Transmission Date: 20200409
  Serious: No
  Sender: FDA-Public Use
  Company Number: NVSC2019US064042

PATIENT
  Sex: Male

DRUGS (2)
  1. VOTRIENT [Suspect]
     Active Substance: PAZOPANIB HYDROCHLORIDE
     Indication: HEPATIC NEOPLASM
     Dosage: 200 MG, QD
     Route: 048
     Dates: start: 20191108
  2. VOTRIENT [Suspect]
     Active Substance: PAZOPANIB HYDROCHLORIDE
     Indication: GALLBLADDER CANCER
     Dosage: 800 MG, QD
     Route: 048
     Dates: start: 201911

REACTIONS (3)
  - Hair colour changes [Unknown]
  - Blood pressure increased [Unknown]
  - Rash [Unknown]
